FAERS Safety Report 5880183-7 (Version None)
Quarter: 2008Q3

REPORT INFORMATION
  Report Type: 
  Country: None (occurrence: None)
  Receive Date: 20080910
  Receipt Date: 20080910
  Transmission Date: 20090109
  Serious: Yes (Other)
  Sender: FDA-Public Use
  Company Number: None

PATIENT
  Age: 37 Year
  Sex: Female
  Weight: 70.3075 kg

DRUGS (1)
  1. PREDNISONE [Suspect]
     Indication: DERMATITIS CONTACT
     Dosage: 10 MG  5 DAY FOR 3 DAYS

REACTIONS (11)
  - DELUSION [None]
  - DIZZINESS [None]
  - FAECES DISCOLOURED [None]
  - FEELING HOT [None]
  - HALLUCINATION [None]
  - HEADACHE [None]
  - INCREASED APPETITE [None]
  - INSOMNIA [None]
  - MENSTRUATION IRREGULAR [None]
  - POLLAKIURIA [None]
  - POLYMENORRHOEA [None]
